FAERS Safety Report 5305491-X (Version None)
Quarter: 2007Q2

REPORT INFORMATION
  Report Type: 
  Country: None (occurrence: None)
  Receive Date: 20070416
  Receipt Date: 20070329
  Transmission Date: 20071010
  Serious: Yes (Other)
  Sender: FDA-Public Use
  Company Number: 2006JP004214

PATIENT
  Sex: Female
  Weight: 48 kg

DRUGS (4)
  1. TACROLIMUS [Suspect]
     Indication: RHEUMATOID ARTHRITIS
     Dosage: 3 MG, UID/QD, ORAL
     Route: 048
     Dates: start: 20060301
  2. VOLTAREN [Concomitant]
  3. PREDNISOLONE [Concomitant]
  4. ADOFED (FLURBIPROFEN) [Concomitant]

REACTIONS (2)
  - BLOOD CREATININE INCREASED [None]
  - MELAENA [None]
